FAERS Safety Report 7602820-9 (Version None)
Quarter: 2011Q2

REPORT INFORMATION
  Report Type: 
  Country: None (occurrence: None)
  Receive Date: 20110630
  Receipt Date: 20110617
  Transmission Date: 20111010
  Serious: Yes (Hospitalization, Other)
  Sender: FDA-Public Use
  Company Number: EU-2011-10043

PATIENT
  Sex: Female

DRUGS (7)
  1. ASS (ACETYLSALICYLIC ACID) TABLET [Concomitant]
  2. BELOC (METOPROLOL SUCCINATE) TABLET [Concomitant]
  3. SAMSCA [Suspect]
     Indication: INAPPROPRIATE ANTIDIURETIC HORMONE SECRETION
     Dosage: 15 MG MILLIGRAM(S), QD, ORAL
     Route: 048
     Dates: start: 20101106, end: 20101107
  4. DIOVAN [Concomitant]
  5. SODIUM CHLORIDE [Suspect]
     Dosage: 10 ML MILLILITRE(S), DAILY DOSE, INTRAVENOUS 50 ML MILLILITRE(S), DAILY DOSE, INTRAVENOUS
     Route: 042
     Dates: start: 20101103, end: 20101105
  6. SODIUM CHLORIDE [Suspect]
     Dosage: 10 ML MILLILITRE(S), DAILY DOSE, INTRAVENOUS 50 ML MILLILITRE(S), DAILY DOSE, INTRAVENOUS
     Route: 042
     Dates: start: 20101102, end: 20101103
  7. ZOCOR [Concomitant]

REACTIONS (7)
  - PSYCHOTIC DISORDER [None]
  - RENAL FAILURE ACUTE [None]
  - DELIRIUM [None]
  - BLOOD SODIUM INCREASED [None]
  - RAPID CORRECTION OF HYPONATRAEMIA [None]
  - AGGRESSION [None]
  - RENAL FAILURE CHRONIC [None]
